FAERS Safety Report 5241376-5 (Version None)
Quarter: 2007Q1

REPORT INFORMATION
  Report Type: 
  Country: None (occurrence: None)
  Receive Date: 20070220
  Receipt Date: 20070212
  Transmission Date: 20070707
  Serious: Yes (Other)
  Sender: FDA-Public Use
  Company Number: GR-RB-005287-07

PATIENT
  Age: 29 Year
  Sex: Female

DRUGS (3)
  1. SUBUTEX [Suspect]
     Route: 060
     Dates: start: 20040520
  2. IRON [Concomitant]
     Indication: DRUG USE FOR UNKNOWN INDICATION
     Dosage: DOSAGE AND DATES UNKNOWN
     Route: 048
  3. FILICINE [Concomitant]
     Dosage: DOSAGE AND DATES UNKNOWN
     Route: 048
     Dates: start: 20061218

REACTIONS (2)
  - ABORTION [None]
  - DRUG EXPOSURE DURING PREGNANCY [None]
